FAERS Safety Report 25999986 (Version 1)
Quarter: 2025Q4

REPORT INFORMATION
  Report Type: Spontaneous
  Country: AU (occurrence: AU)
  Receive Date: 20251105
  Receipt Date: 20251105
  Transmission Date: 20260118
  Serious: Yes (Hospitalization, Other)
  Sender: RANBAXY
  Company Number: AU-SUN PHARMACEUTICAL INDUSTRIES LTD-2025R1-534431

PATIENT
  Sex: Male

DRUGS (13)
  1. OCTREOTIDE [Suspect]
     Active Substance: OCTREOTIDE
     Indication: Metastatic carcinoid tumour
     Dosage: UNK
     Route: 058
     Dates: start: 201405
  2. OCTREOTIDE [Suspect]
     Active Substance: OCTREOTIDE
     Indication: Pancreatic neuroendocrine tumour
     Dosage: 200 MICROGRAM, DAILY
     Route: 058
     Dates: start: 201409
  3. LANREOTIDE [Suspect]
     Active Substance: LANREOTIDE
     Indication: Product used for unknown indication
     Dosage: UNK
     Route: 065
  4. LUTETIUM CHLORIDE LU-177 [Suspect]
     Active Substance: LUTETIUM CHLORIDE LU-177
     Indication: Product used for unknown indication
     Dosage: UNK (7.4 GIGABECQUEREL)
     Route: 065
     Dates: start: 201501
  5. LUTETIUM CHLORIDE LU-177 [Suspect]
     Active Substance: LUTETIUM CHLORIDE LU-177
     Dosage: UNK (4.95 GIGABECQUEREL)
     Route: 065
     Dates: start: 20141002
  6. LUTETIUM CHLORIDE LU-177 [Suspect]
     Active Substance: LUTETIUM CHLORIDE LU-177
     Dosage: UNK (7.4 GIGABECQUEREL)
     Route: 065
     Dates: start: 201411
  7. SANDOSTATIN LAR DEPOT [Suspect]
     Active Substance: OCTREOTIDE ACETATE
     Indication: Pancreatic neuroendocrine tumour
     Dosage: 30 MILLIGRAM, MONTHLY
     Route: 030
     Dates: start: 201405
  8. SANDOSTATIN LAR DEPOT [Suspect]
     Active Substance: OCTREOTIDE ACETATE
     Indication: Metastatic carcinoid tumour
     Dosage: 30 MILLIGRAM, MONTHLY
     Route: 030
     Dates: start: 201406
  9. ASPIRIN [Concomitant]
     Active Substance: ASPIRIN
     Indication: Product used for unknown indication
     Dosage: UNK (100 MILLIGRAM)
     Route: 065
  10. ATORVASTATIN [Concomitant]
     Active Substance: ATORVASTATIN
     Indication: Product used for unknown indication
     Dosage: UNK
     Route: 065
  11. DEXAMETHASONE [Concomitant]
     Active Substance: DEXAMETHASONE
     Indication: Product used for unknown indication
     Dosage: UNK
     Route: 065
     Dates: start: 20140703
  12. HEPARIN [Concomitant]
     Active Substance: HEPARIN SODIUM
     Indication: Product used for unknown indication
     Dosage: UNK
     Route: 065
     Dates: start: 20140628
  13. RANITIDINE [Concomitant]
     Active Substance: RANITIDINE
     Indication: Product used for unknown indication
     Dosage: UNK
     Route: 065
     Dates: start: 20140703

REACTIONS (18)
  - Acute myocardial infarction [Unknown]
  - Angina pectoris [Unknown]
  - Carcinoid crisis [Unknown]
  - Cardiac arrest [Unknown]
  - Circulatory collapse [Not Recovered/Not Resolved]
  - Diarrhoea [Unknown]
  - Coronary artery disease [Unknown]
  - Dizziness [Not Recovered/Not Resolved]
  - Electrocardiogram QT prolonged [Recovering/Resolving]
  - Flushing [Not Recovered/Not Resolved]
  - Haemodynamic instability [Unknown]
  - Hypertension [Unknown]
  - Ischaemia [Unknown]
  - Loss of consciousness [Unknown]
  - Malignant neoplasm progression [Unknown]
  - Metastases to liver [Unknown]
  - Product administration error [Unknown]
  - Therapeutic response decreased [Not Recovered/Not Resolved]

NARRATIVE: CASE EVENT DATE: 20140601
